FAERS Safety Report 20850032 (Version 3)
Quarter: 2022Q2

REPORT INFORMATION
  Report Type: Report from Study
  Country: US (occurrence: US)
  Receive Date: 20220519
  Receipt Date: 20220629
  Transmission Date: 20220720
  Serious: Yes (Hospitalization, Other)
  Sender: FDA-Public Use
  Company Number: US-BRISTOL-MYERS SQUIBB COMPANY-2022-043472

PATIENT
  Sex: Male
  Weight: 86.2 kg

DRUGS (5)
  1. NIVOLUMAB [Suspect]
     Active Substance: NIVOLUMAB
     Indication: Laryngeal cancer
     Dates: start: 20220128, end: 20220311
  2. CARBOPLATIN [Suspect]
     Active Substance: CARBOPLATIN
     Indication: Laryngeal cancer
     Dates: start: 20220128, end: 20220311
  3. CISPLATIN [Suspect]
     Active Substance: CISPLATIN
     Indication: Laryngeal cancer
     Dates: start: 20220404
  4. CISPLATIN [Suspect]
     Active Substance: CISPLATIN
     Route: 065
     Dates: start: 20220425
  5. PACLITAXEL [Suspect]
     Active Substance: PACLITAXEL
     Indication: Laryngeal cancer
     Dates: start: 20220128, end: 20220325

REACTIONS (4)
  - Hypotension [Unknown]
  - Hypoxia [Unknown]
  - COVID-19 [Unknown]
  - Mucosal inflammation [Unknown]

NARRATIVE: CASE EVENT DATE: 20220511
